FAERS Safety Report 7562911-8 (Version None)
Quarter: 2011Q2

REPORT INFORMATION
  Report Type: 
  Country: None (occurrence: None)
  Receive Date: 20110615
  Receipt Date: 20110608
  Transmission Date: 20111010
  Serious: Yes (Other)
  Sender: FDA-Public Use
  Company Number: 201110688

PATIENT
  Sex: Male

DRUGS (3)
  1. BUPIVACAINE INTRATHECAL [Concomitant]
  2. LIORESAL [Suspect]
     Indication: MUSCLE SPASTICITY
     Dosage: DAILY, INTRATHECAL
     Route: 037
  3. MORPHINE [Concomitant]

REACTIONS (1)
  - INFUSION SITE MASS [None]
